FAERS Safety Report 9553715 (Version 3)
Quarter: 2013Q4

REPORT INFORMATION
  Report Type: Report from Study
  Country: GB (occurrence: GB)
  Receive Date: 20130925
  Receipt Date: 20131220
  Transmission Date: 20140711
  Serious: Yes (Hospitalization)
  Sender: FDA-Public Use
  Company Number: GB-JNJFOC-20130914121

PATIENT
  Age: 18 Year
  Sex: Male
  Weight: 51.2 kg

DRUGS (3)
  1. REMICADE [Suspect]
     Indication: CROHN^S DISEASE
     Route: 042
     Dates: start: 20101001, end: 20110614
  2. HUMIRA [Concomitant]
     Indication: CROHN^S DISEASE
     Route: 065
     Dates: start: 20111117
  3. AZATHIOPRINE [Concomitant]
     Route: 065
     Dates: start: 20111117

REACTIONS (2)
  - Anal abscess [Recovered/Resolved]
  - Anal fistula [Recovered/Resolved]
